FAERS Safety Report 5105429-4 (Version None)
Quarter: 2006Q3

REPORT INFORMATION
  Report Type: 
  Country: None (occurrence: None)
  Receive Date: 20060915
  Receipt Date: 20060908
  Transmission Date: 20061208
  Serious: Yes (Death)
  Sender: FDA-Public Use
  Company Number: PHBS2006NO13674

PATIENT
  Age: 77 Year
  Sex: Female

DRUGS (8)
  1. MAREVAN [Suspect]
     Indication: CARDIAC VALVE PROSTHESIS USER
     Dosage: 5 MG/DAY
     Route: 065
     Dates: start: 19860101
  2. ESCITALOPRAM OXALATE [Concomitant]
     Indication: DEPRESSION
     Dosage: 20 MG/DAY
     Route: 065
  3. NYCOPLUS FERRO [Concomitant]
     Indication: ANAEMIA
     Dosage: 100 MG, BID
     Route: 065
  4. PINEX [Concomitant]
     Indication: PAIN
     Dosage: 1 G, QID
     Route: 065
     Dates: start: 20060714
  5. OXYNORM [Concomitant]
     Dosage: 5 MG X 2 TO 4 TIMES
     Route: 065
  6. ISOPTIN [Concomitant]
     Dosage: 120 MG, QD
     Route: 065
  7. ZOPICLONE [Concomitant]
     Indication: SLEEP DISORDER
     Dosage: 7.5 MG, QD
     Route: 065
  8. VOLTAREN [Suspect]
     Indication: BACK PAIN
     Dosage: 50 MG, TID
     Route: 065
     Dates: start: 20060713, end: 20060714

REACTIONS (9)
  - COLD SWEAT [None]
  - DRUG INTERACTION [None]
  - FEELING ABNORMAL [None]
  - HAEMOGLOBIN DECREASED [None]
  - HEART RATE INCREASED [None]
  - INTERNATIONAL NORMALISED RATIO INCREASED [None]
  - MELAENA [None]
  - PULSE PRESSURE INCREASED [None]
  - WHITE BLOOD CELL COUNT INCREASED [None]
